FAERS Safety Report 13518949 (Version 1)
Quarter: 2017Q2

REPORT INFORMATION
  Report Type: Spontaneous
  Country: AU (occurrence: AU)
  Receive Date: 20170505
  Receipt Date: 20170505
  Transmission Date: 20170830
  Serious: Yes (Other)
  Sender: FDA-Public Use
  Company Number: AU-TAKEDA-2017TEU001930

PATIENT
  Age: 49 Year
  Sex: Female

DRUGS (5)
  1. LANSOPRAZOLE. [Suspect]
     Active Substance: LANSOPRAZOLE
     Indication: PRODUCT USED FOR UNKNOWN INDICATION
     Dosage: 210 MG, UNK
     Route: 048
  2. CLOPIDOGREL [Suspect]
     Active Substance: CLOPIDOGREL BISULFATE
     Indication: PRODUCT USED FOR UNKNOWN INDICATION
     Dosage: 825 MG, UNK
     Route: 048
  3. LERCANIDIPINE [Suspect]
     Active Substance: LERCANIDIPINE
     Indication: PRODUCT USED FOR UNKNOWN INDICATION
     Dosage: 140 MG, UNK
     Route: 048
  4. DESVENLAFAXINE. [Suspect]
     Active Substance: DESVENLAFAXINE
     Indication: PRODUCT USED FOR UNKNOWN INDICATION
     Dosage: 700 MG, UNK
     Route: 048
  5. PERINDOPRIL [Suspect]
     Active Substance: PERINDOPRIL
     Indication: PRODUCT USED FOR UNKNOWN INDICATION
     Dosage: 100 MG, UNK
     Route: 048

REACTIONS (2)
  - Overdose [Unknown]
  - Coma scale abnormal [Unknown]
